FAERS Safety Report 17428206 (Version 1)
Quarter: 2020Q1

REPORT INFORMATION
  Report Type: Spontaneous
  Country: US (occurrence: US)
  Receive Date: 20200218
  Receipt Date: 20200218
  Transmission Date: 20200409
  Serious: Yes (Other)
  Sender: FDA-Public Use
  Company Number: US-ALKEM LABORATORIES LIMITED-US-ALKEM-2019-03547

PATIENT
  Age: 42 Year
  Sex: Male

DRUGS (3)
  1. AMIKACIN. [Concomitant]
     Active Substance: AMIKACIN
     Indication: NOCARDIOSIS
     Dosage: UNKNOWN
     Route: 042
  2. SULFAMETHOXAZOLE, TRIMETHOPRIM [Concomitant]
     Active Substance: SULFAMETHOXAZOLE\TRIMETHOPRIM
     Indication: NOCARDIOSIS
     Dosage: UNKNOWN
     Route: 065
  3. LINEZOLID. [Suspect]
     Active Substance: LINEZOLID
     Indication: NOCARDIOSIS
     Dosage: UNKNOWN
     Route: 065

REACTIONS (1)
  - Thrombocytopenia [Recovering/Resolving]
